FAERS Safety Report 25637882 (Version 1)
Quarter: 2025Q3

REPORT INFORMATION
  Report Type: Report from Study
  Country: US (occurrence: US)
  Receive Date: 20250804
  Receipt Date: 20250804
  Transmission Date: 20251021
  Serious: No
  Sender: SANDOZ
  Company Number: US-SANDOZ-SDZ2025US037841

PATIENT
  Age: 9 Year
  Sex: Male

DRUGS (4)
  1. OMNITROPE [Suspect]
     Active Substance: SOMATROPIN
     Indication: Short stature
     Dosage: 0.6 MG, QD (ONCE DAILY) (OMNITROPE 10 MG / 1.5 ML SOLUTION FOR INJECTION)
     Route: 058
     Dates: start: 202505
  2. OMNITROPE [Suspect]
     Active Substance: SOMATROPIN
     Indication: Short stature
     Dosage: 0.6 MG, QD (ONCE DAILY) (OMNITROPE 10 MG / 1.5 ML SOLUTION FOR INJECTION)
     Route: 058
     Dates: start: 202505
  3. OMNITROPE [Suspect]
     Active Substance: SOMATROPIN
     Route: 058
     Dates: start: 202505
  4. OMNITROPE [Suspect]
     Active Substance: SOMATROPIN
     Route: 058
     Dates: start: 202505

REACTIONS (5)
  - Anxiety [Unknown]
  - Crying [Unknown]
  - Product storage error [Unknown]
  - Poor quality product administered [Unknown]
  - Device leakage [Unknown]

NARRATIVE: CASE EVENT DATE: 20250501
